FAERS Safety Report 6333814-1 (Version None)
Quarter: 2009Q3

REPORT INFORMATION
  Report Type: 
  Country: None (occurrence: None)
  Receive Date: 20090829
  Receipt Date: 20090615
  Transmission Date: 20100115
  Serious: No
  Sender: FDA-Public Use
  Company Number: US-ABBOTT-09P-163-0579754-00

PATIENT
  Sex: Female

DRUGS (3)
  1. SIMCOR [Suspect]
     Indication: BLOOD CHOLESTEROL INCREASED
     Dosage: 500MG/20MG EVERY NIGHT
     Dates: start: 20090401, end: 20090501
  2. SIMCOR [Suspect]
     Dosage: INCREASED DOSE
     Dates: start: 20090501
  3. IRON [Concomitant]
     Indication: DRUG USE FOR UNKNOWN INDICATION
     Dosage: PILL; DAILY
     Route: 048

REACTIONS (3)
  - FEELING COLD [None]
  - HYPOAESTHESIA [None]
  - PARAESTHESIA [None]
